FAERS Safety Report 4674465-4 (Version None)
Quarter: 2005Q2

REPORT INFORMATION
  Report Type: 
  Country: None (occurrence: None)
  Receive Date: 20050524
  Receipt Date: 20050326
  Transmission Date: 20051028
  Serious: Yes (Hospitalization, Other)
  Sender: FDA-Public Use
  Company Number: ATO-05-0162

PATIENT
  Sex: Male

DRUGS (1)
  1. TRISENOX [Suspect]
     Dates: start: 20050301

REACTIONS (3)
  - FLUID RETENTION [None]
  - PANCYTOPENIA [None]
  - WEIGHT INCREASED [None]
